FAERS Safety Report 7048826-2 (Version None)
Quarter: 2010Q4

REPORT INFORMATION
  Report Type: 
  Country: None (occurrence: None)
  Receive Date: 20101018
  Receipt Date: 20101018
  Transmission Date: 20110411
  Serious: Yes (Life-Threatening, Hospitalization)
  Sender: FDA-Public Use
  Company Number: PHHO2010IT12024

PATIENT
  Sex: Male
  Weight: 72 kg

DRUGS (3)
  1. PLACEBO COMP-PLA+ [Suspect]
     Indication: PANCREATIC NEUROENDOCRINE TUMOUR
     Dosage: PLACEBO
     Route: 048
     Dates: start: 20091009
  2. RAD 666 [Suspect]
     Indication: CHEMOTHERAPY MULTIPLE AGENTS SYSTEMIC
  3. INSULIN [Concomitant]

REACTIONS (1)
  - HYPOGLYCAEMIC COMA [None]
